FAERS Safety Report 7643227-8 (Version None)
Quarter: 2011Q3

REPORT INFORMATION
  Report Type: 
  Country: None (occurrence: None)
  Receive Date: 20110729
  Receipt Date: 20110719
  Transmission Date: 20111222
  Serious: No
  Sender: FDA-Public Use
  Company Number: US-BIOGENIDEC-2011BI020390

PATIENT
  Sex: Female

DRUGS (1)
  1. TYSABRI [Suspect]
     Indication: MULTIPLE SCLEROSIS
     Route: 042
     Dates: start: 20071008, end: 20110614

REACTIONS (6)
  - MULTIPLE SCLEROSIS [None]
  - JC VIRUS TEST POSITIVE [None]
  - GAIT DISTURBANCE [None]
  - MUSCLE ATROPHY [None]
  - FATIGUE [None]
  - ASTHENIA [None]
